FAERS Safety Report 19577301 (Version 1)
Quarter: 2021Q3

REPORT INFORMATION
  Report Type: Spontaneous
  Country: US (occurrence: US)
  Receive Date: 20210719
  Receipt Date: 20210719
  Transmission Date: 20211014
  Serious: No
  Sender: FDA-Public Use
  Company Number: US-PFIZER INC-2021455300

PATIENT
  Age: 76 Year
  Sex: Female

DRUGS (1)
  1. IBRANCE [Suspect]
     Active Substance: PALBOCICLIB
     Dosage: 125 MG
     Dates: start: 20180726

REACTIONS (5)
  - Aphthous ulcer [Unknown]
  - Arthralgia [Unknown]
  - Dizziness [Unknown]
  - Abdominal pain upper [Unknown]
  - Alopecia [Unknown]
